FAERS Safety Report 4578642-2 (Version None)
Quarter: 2005Q1

REPORT INFORMATION
  Report Type: 
  Country: None (occurrence: None)
  Receive Date: 20050209
  Receipt Date: 20050209
  Transmission Date: 20050727
  Serious: Yes (Other)
  Sender: FDA-Public Use
  Company Number: None

PATIENT
  Age: 75 Year
  Sex: Male
  Weight: 92.9874 kg

DRUGS (3)
  1. FLOMAX [Suspect]
     Indication: BENIGN PROSTATIC HYPERPLASIA
     Dosage: 1  DAILY  ORAL
     Route: 048
     Dates: start: 20030101, end: 20040109
  2. PROCANBID [Concomitant]
  3. ATENOLOL [Concomitant]

REACTIONS (2)
  - IRIDOCELE [None]
  - PROCEDURAL COMPLICATION [None]
